FAERS Safety Report 9105347 (Version 1)
Quarter: 2013Q1

REPORT INFORMATION
  Report Type: Spontaneous
  Country: US (occurrence: US)
  Receive Date: 20130220
  Receipt Date: 20130220
  Transmission Date: 20140127
  Serious: Yes (Other)
  Sender: FDA-Public Use
  Company Number: US-BAYER-2013-021644

PATIENT
  Age: 88 Year
  Sex: Male

DRUGS (4)
  1. VARDENAFIL [Suspect]
     Indication: ERECTILE DYSFUNCTION
     Dosage: 10 MG, OW
     Route: 048
     Dates: start: 201212, end: 20130216
  2. ZETIA [Concomitant]
  3. CRESTOR [Concomitant]
  4. FLOMAX [Concomitant]

REACTIONS (1)
  - Hypotension [Recovered/Resolved]
